FAERS Safety Report 7249491-1 (Version None)
Quarter: 2011Q1

REPORT INFORMATION
  Report Type: 
  Country: None (occurrence: None)
  Receive Date: 20110121
  Receipt Date: 20110121
  Transmission Date: 20110831
  Serious: Yes (Hospitalization)
  Sender: FDA-Public Use
  Company Number: None

PATIENT
  Age: 68 Year
  Sex: Male
  Weight: 63.5 kg

DRUGS (1)
  1. LISINOPRIL [Suspect]
     Indication: HYPERTENSION
     Dosage: 10 MG EVERY DAY PO
     Route: 048
     Dates: start: 20100920, end: 20101120

REACTIONS (6)
  - ABDOMINAL PAIN [None]
  - COUGH [None]
  - NAUSEA [None]
  - ANGIOEDEMA [None]
  - VOMITING [None]
  - WHEEZING [None]
